FAERS Safety Report 4315275-7 (Version None)
Quarter: 2004Q1

REPORT INFORMATION
  Report Type: 
  Country: None (occurrence: None)
  Receive Date: 20040311
  Receipt Date: 20030506
  Transmission Date: 20041129
  Serious: Yes (Hospitalization)
  Sender: FDA-Public Use
  Company Number: 200310513JP

PATIENT
  Age: 51 Year
  Sex: Male
  Weight: 69.2 kg

DRUGS (3)
  1. ALLEGRA [Suspect]
     Indication: RHINITIS ALLERGIC
     Route: 048
     Dates: start: 20030322, end: 20030430
  2. RIZALAST [Suspect]
     Indication: RHINITIS ALLERGIC
     Route: 048
     Dates: start: 20030322, end: 20030430
  3. HISTAGLOBIN [Concomitant]
     Indication: RHINITIS ALLERGIC

REACTIONS (16)
  - BLOOD CREATINE INCREASED [None]
  - CHROMATURIA [None]
  - CYSTITIS [None]
  - DECREASED APPETITE [None]
  - DYSURIA [None]
  - EAR DISORDER [None]
  - HEADACHE [None]
  - HEPATIC NECROSIS [None]
  - HEPATITIS [None]
  - HEPATOMEGALY [None]
  - JAUNDICE [None]
  - LYMPHOCYTE STIMULATION TEST POSITIVE [None]
  - PROTEIN URINE PRESENT [None]
  - PRURITUS [None]
  - PRURITUS GENERALISED [None]
  - RHINITIS [None]
